FAERS Safety Report 13345332 (Version 1)
Quarter: 2017Q1

REPORT INFORMATION
  Report Type: Spontaneous
  Country: GB (occurrence: GB)
  Receive Date: 20170317
  Receipt Date: 20170317
  Transmission Date: 20170428
  Serious: Yes (Other)
  Sender: FDA-Public Use
  Company Number: GB-JNJFOC-20170316647

PATIENT
  Age: 67 Year
  Sex: Male
  Weight: 110 kg

DRUGS (9)
  1. CANAGLIFLOZIN [Suspect]
     Active Substance: CANAGLIFLOZIN
     Indication: PRODUCT USED FOR UNKNOWN INDICATION
     Route: 065
     Dates: start: 20160804
  2. TERAZOSIN [Concomitant]
     Active Substance: TERAZOSIN\TERAZOSIN HYDROCHLORIDE
     Dosage: AT NIGHT
     Route: 065
     Dates: start: 20160804
  3. ASPIRIN. [Concomitant]
     Active Substance: ASPIRIN
     Route: 065
     Dates: start: 20160804
  4. LISINOPRIL. [Concomitant]
     Active Substance: LISINOPRIL
     Dosage: AT NIGHT
     Route: 065
     Dates: start: 20160804
  5. DIPROBASE [Concomitant]
     Active Substance: CHLOROCRESOL
     Dosage: AS DIRECTED
     Route: 065
     Dates: start: 20160804
  6. MACROGOL [Concomitant]
     Active Substance: POLYETHYLENE GLYCOLS
     Dosage: USE AS DIRECTED
     Route: 065
     Dates: start: 20160804
  7. METFORMIN [Concomitant]
     Active Substance: METFORMIN HYDROCHLORIDE
     Route: 065
     Dates: start: 20160804
  8. GLICLAZIDE [Concomitant]
     Active Substance: GLICLAZIDE
     Route: 065
     Dates: start: 20160804
  9. ATORVASTATIN [Concomitant]
     Active Substance: ATORVASTATIN
     Route: 065
     Dates: start: 20160804

REACTIONS (1)
  - Penile pain [Recovered/Resolved]

NARRATIVE: CASE EVENT DATE: 20170102
